FAERS Safety Report 10615705 (Version 2)
Quarter: 2014Q4

REPORT INFORMATION
  Report Type: Spontaneous
  Country: DE (occurrence: DE)
  Receive Date: 20141201
  Receipt Date: 20141208
  Transmission Date: 20150529
  Serious: Yes (Hospitalization, Other)
  Sender: FDA-Public Use
  Company Number: DE-THROMBOGENICS NV-SPO-2014-1452

PATIENT
  Age: 56 Year
  Sex: Male

DRUGS (2)
  1. JETREA [Suspect]
     Active Substance: OCRIPLASMIN
     Indication: VITREOUS ADHESIONS
     Dosage: 0.125 MG, ONE TIME DOSE
     Route: 031
     Dates: start: 20141120, end: 20141120
  2. ANTIHYPERTENSIVES [Concomitant]
     Active Substance: UNSPECIFIED INGREDIENT

REACTIONS (7)
  - Retinal detachment [Unknown]
  - Eye irritation [Unknown]
  - Eye pain [Unknown]
  - Anterior chamber cell [Unknown]
  - Visual acuity reduced [Unknown]
  - Corneal disorder [Unknown]
  - Photopsia [Unknown]

NARRATIVE: CASE EVENT DATE: 20141120
